FAERS Safety Report 24258528 (Version 1)
Quarter: 2024Q3

REPORT INFORMATION
  Report Type: Spontaneous
  Country: CA (occurrence: CA)
  Receive Date: 20240828
  Receipt Date: 20240828
  Transmission Date: 20241016
  Serious: Yes (Hospitalization, Other)
  Sender: BRISTOL MYERS SQUIBB
  Company Number: CA-BRISTOL-MYERS SQUIBB COMPANY-2024-135424

PATIENT
  Age: 75 Year
  Sex: Male

DRUGS (4)
  1. ELIQUIS [Suspect]
     Active Substance: APIXABAN
     Indication: Product used for unknown indication
     Route: 048
  2. HYDROCHLOROTHIAZIDE [Concomitant]
     Active Substance: HYDROCHLOROTHIAZIDE
     Indication: Product used for unknown indication
  3. LATANOPROST [Concomitant]
     Active Substance: LATANOPROST
     Indication: Product used for unknown indication
     Dosage: SOLUTION OPHTHALMIC
  4. RAMIPRIL [Concomitant]
     Active Substance: RAMIPRIL
     Indication: Product used for unknown indication

REACTIONS (9)
  - Bladder mass [Recovering/Resolving]
  - Bladder obstruction [Recovering/Resolving]
  - Haematuria [Recovering/Resolving]
  - Haemoglobin decreased [Recovering/Resolving]
  - Neoplasm malignant [Recovering/Resolving]
  - Thyroid mass [Recovering/Resolving]
  - Urinary bladder haemorrhage [Recovering/Resolving]
  - Urinary retention [Recovering/Resolving]
  - Hospitalisation [Unknown]
